FAERS Safety Report 12707586 (Version 22)
Quarter: 2019Q4

REPORT INFORMATION
  Report Type: Report from Study
  Country: US (occurrence: US)
  Receive Date: 20160901
  Receipt Date: 20191226
  Transmission Date: 20200122
  Serious: Yes (Hospitalization, Other)
  Sender: FDA-Public Use
  Company Number: US-ACTELION-A-NJ2016-138084

PATIENT
  Age: 76 Year
  Sex: Female
  Weight: 56.69 kg

DRUGS (16)
  1. UPTRAVI [Suspect]
     Active Substance: SELEXIPAG
     Dosage: 1200 MCG, BID
     Route: 048
  2. OPSUMIT [Suspect]
     Active Substance: MACITENTAN
     Dosage: 10 MG, QD
     Route: 048
  3. ADEMPAS [Concomitant]
     Active Substance: RIOCIGUAT
     Dosage: UNK
     Dates: end: 20190111
  4. UPTRAVI [Suspect]
     Active Substance: SELEXIPAG
     Dosage: 200 MCG, BID
     Route: 048
  5. TYVASO [Suspect]
     Active Substance: TREPROSTINIL
     Indication: PULMONARY ARTERIAL HYPERTENSION
     Dosage: 36-54 MCG 6 TO 9 BREATHS
     Route: 055
     Dates: start: 20110217
  6. REVATIO [Concomitant]
     Active Substance: SILDENAFIL CITRATE
  7. OPSUMIT [Suspect]
     Active Substance: MACITENTAN
     Indication: PULMONARY ARTERIAL HYPERTENSION
     Dosage: 10 MG, QD
     Route: 048
     Dates: start: 20150707
  8. UPTRAVI [Suspect]
     Active Substance: SELEXIPAG
     Dosage: UNK
     Route: 048
  9. UPTRAVI [Suspect]
     Active Substance: SELEXIPAG
     Dosage: 800 MCG, BID
     Route: 048
  10. UPTRAVI [Suspect]
     Active Substance: SELEXIPAG
     Indication: PULMONARY ARTERIAL HYPERTENSION
     Dosage: 600 MCG, BID
     Route: 048
  11. AMBRISENTAN [Suspect]
     Active Substance: AMBRISENTAN
     Indication: PULMONARY HYPERTENSION
     Dosage: 10 MG, QD
     Route: 065
     Dates: start: 20181220
  12. DILTIAZEM. [Concomitant]
     Active Substance: DILTIAZEM
  13. UPTRAVI [Suspect]
     Active Substance: SELEXIPAG
     Dosage: 1000 MCG, BID
     Route: 048
     Dates: start: 20160504
  14. ADEMPAS [Concomitant]
     Active Substance: RIOCIGUAT
     Dosage: 2 MG, UNK
     Dates: start: 20190114
  15. PROCARDIA [Concomitant]
     Active Substance: NIFEDIPINE
  16. UPTRAVI [Suspect]
     Active Substance: SELEXIPAG
     Dosage: 200 MCG, BID
     Route: 048

REACTIONS (38)
  - Gastric haemorrhage [Unknown]
  - Peripheral swelling [Unknown]
  - Headache [Unknown]
  - Dyspnoea [Unknown]
  - Laparoscopic surgery [Unknown]
  - Cardiac failure congestive [Unknown]
  - Malaise [Unknown]
  - Abdominal distension [Unknown]
  - Somnolence [Unknown]
  - Decreased appetite [Unknown]
  - Intestinal obstruction [Unknown]
  - Diarrhoea [Not Recovered/Not Resolved]
  - Weight decreased [Unknown]
  - Flushing [Unknown]
  - Dyspnoea exertional [Unknown]
  - Blood count abnormal [Unknown]
  - Nausea [Unknown]
  - Abdominal discomfort [Unknown]
  - Back pain [Unknown]
  - Transfusion [Unknown]
  - Product administration error [Unknown]
  - Pulmonary oedema [Unknown]
  - Haemoglobin decreased [Unknown]
  - Feeling abnormal [Recovering/Resolving]
  - Constipation [Unknown]
  - Fluid retention [Unknown]
  - Hospitalisation [Unknown]
  - Ovarian cyst [Unknown]
  - Pain in extremity [Unknown]
  - Pneumonia [Unknown]
  - Cough [Not Recovered/Not Resolved]
  - Asthenopia [Unknown]
  - Myalgia [Not Recovered/Not Resolved]
  - Gastric mucosal lesion [Unknown]
  - Condition aggravated [Unknown]
  - Asthenia [Not Recovered/Not Resolved]
  - Fatigue [Unknown]
  - Neck pain [Unknown]

NARRATIVE: CASE EVENT DATE: 201607
